FAERS Safety Report 8563802-6 (Version None)
Quarter: 2012Q3

REPORT INFORMATION
  Report Type: 
  Country: None (occurrence: None)
  Receive Date: 20120803
  Receipt Date: 20120731
  Transmission Date: 20120928
  Serious: Yes (Hospitalization, Other)
  Sender: FDA-Public Use
  Company Number: US-AMGEN-USASP2012047869

PATIENT
  Age: 55 Year
  Sex: Female

DRUGS (1)
  1. ENBREL [Suspect]
     Indication: RHEUMATOID ARTHRITIS
     Dosage: 25 MG, UNK
     Route: 058
     Dates: start: 20011101

REACTIONS (8)
  - ANKLE OPERATION [None]
  - VENOUS INSUFFICIENCY [None]
  - SPINAL FRACTURE [None]
  - OSTEOPOROSIS [None]
  - BACK PAIN [None]
  - NEUROPATHY PERIPHERAL [None]
  - CELLULITIS [None]
  - PULMONARY EMBOLISM [None]
